FAERS Safety Report 4739798-1 (Version None)
Quarter: 2005Q3

REPORT INFORMATION
  Report Type: 
  Country: None (occurrence: None)
  Receive Date: 20050805
  Receipt Date: 20050727
  Transmission Date: 20060218
  Serious: Yes (Other)
  Sender: FDA-Public Use
  Company Number: 2005106770

PATIENT
  Age: 18 Year
  Sex: Male

DRUGS (1)
  1. DRAMAMINE [Suspect]
     Indication: MOTION SICKNESS
     Dosage: 6 TABLETS ONCE, ORAL
     Route: 048
     Dates: start: 20050726, end: 20050726

REACTIONS (1)
  - HALLUCINATION [None]
